FAERS Safety Report 9303592 (Version 1)
Quarter: 2013Q2

REPORT INFORMATION
  Report Type: Spontaneous
  Country: US (occurrence: None)
  Receive Date: 20130521
  Receipt Date: 20130521
  Transmission Date: 20140414
  Serious: Yes (Hospitalization)
  Sender: FDA-Public Use
  Company Number: None

PATIENT
  Sex: Female

DRUGS (2)
  1. NYQUIL COLD + FLU [Suspect]
     Indication: NASOPHARYNGITIS
     Dosage: AT BEDTIME  ORAL
     Route: 048
     Dates: start: 20130426
  2. NYQUIL COLD + FLU [Suspect]
     Dosage: AT BEDTIME  ORAL
     Route: 048
     Dates: start: 20130426

REACTIONS (1)
  - Visual impairment [None]
